FAERS Safety Report 13932466 (Version 1)
Quarter: 2017Q3

REPORT INFORMATION
  Report Type: Spontaneous
  Country: SG (occurrence: SG)
  Receive Date: 20170904
  Receipt Date: 20170904
  Transmission Date: 20171127
  Serious: Yes (Other)
  Sender: FDA-Public Use
  Company Number: SG-ACCORD-057972

PATIENT
  Age: 61 Year
  Sex: Male

DRUGS (20)
  1. FUROSEMIDE. [Suspect]
     Active Substance: FUROSEMIDE
     Indication: PRODUCT USED FOR UNKNOWN INDICATION
  2. SODIUM BICARBONATE. [Concomitant]
     Active Substance: SODIUM BICARBONATE
  3. SITAGLIPTIN/SITAGLIPTIN PHOSPHATE [Concomitant]
     Dosage: 25 MG OM
  4. ERGOCALCIFEROL. [Concomitant]
     Active Substance: ERGOCALCIFEROL
  5. LOSARTAN. [Concomitant]
     Active Substance: LOSARTAN
     Dosage: ONCE A MORNING
  6. EZETIMIBE/SIMVASTATIN [Concomitant]
     Dosage: EZETIMIBE10 MG, SIMVASTATIN 20 MG
  7. ORPHENADRINE/PARACETAMOL [Concomitant]
     Indication: PAIN
     Dosage: PRN
  8. TRAMADOL. [Concomitant]
     Active Substance: TRAMADOL
  9. CALCIUM ACETATE. [Concomitant]
     Active Substance: CALCIUM ACETATE
  10. HYDROXYZINE [Concomitant]
     Active Substance: HYDROXYZINE HYDROCHLORIDE
     Indication: PRURITUS
     Dosage: PRN
  11. WHITE SOFT PARAFFIN [Concomitant]
     Active Substance: PARAFFIN
     Route: 061
  12. TOLBUTAMIDE/TOLBUTAMIDE SODIUM [Concomitant]
  13. ACETYLSALICYLIC ACID [Concomitant]
     Active Substance: ASPIRIN
     Dosage: ONCE A MORNING
  14. OMEPRAZOLE. [Concomitant]
     Active Substance: OMEPRAZOLE
     Dosage: ONCE MORNING
  15. FENOFIBRATE. [Concomitant]
     Active Substance: FENOFIBRATE
     Dosage: ONCE A MORNING
  16. IRON [Concomitant]
     Active Substance: IRON
     Dosage: ONCE A MORNING
  17. GLUCOSAMINE [Concomitant]
     Active Substance: GLUCOSAMINE
  18. LACTULOSE. [Concomitant]
     Active Substance: LACTULOSE
  19. SENNOSIDE A+B [Concomitant]
     Active Substance: SENNOSIDES A AND B
     Dosage: ONCE A NIGHT
  20. BETAMETHASONE. [Concomitant]
     Active Substance: BETAMETHASONE
     Route: 061

REACTIONS (2)
  - Inappropriate schedule of drug administration [Unknown]
  - Hypokalaemia [Unknown]
